FAERS Safety Report 9370972 (Version 1)
Quarter: 2013Q2

REPORT INFORMATION
  Report Type: Report from Study
  Country: CR (occurrence: CR)
  Receive Date: 20130627
  Receipt Date: 20130627
  Transmission Date: 20140414
  Serious: Yes (Other)
  Sender: FDA-Public Use
  Company Number: CR-ROCHE-1241954

PATIENT
  Age: 66 Year
  Sex: Female

DRUGS (6)
  1. BONVIVA [Suspect]
     Indication: OSTEOPOROSIS
     Route: 048
     Dates: start: 20121229
  2. RIVOTRIL [Suspect]
     Indication: INSOMNIA
     Route: 065
  3. VYTORIN [Concomitant]
  4. ENALAPRIL [Concomitant]
     Indication: HYPERTENSION
  5. ISOPRINOSINE [Concomitant]
     Indication: INFLUENZA
     Route: 065
     Dates: start: 20130622
  6. ANARA [Concomitant]
     Indication: CONSTIPATION

REACTIONS (2)
  - Foot fracture [Recovered/Resolved]
  - Constipation [Not Recovered/Not Resolved]
